FAERS Safety Report 25304144 (Version 1)
Quarter: 2025Q2

REPORT INFORMATION
  Report Type: Report from Study
  Country: CA (occurrence: CA)
  Receive Date: 20250513
  Receipt Date: 20250513
  Transmission Date: 20250716
  Serious: Yes (Other)
  Sender: CELLTRION
  Company Number: CA-CELLTRION INC.-2025CA013624

PATIENT

DRUGS (1)
  1. ADALIMUMAB [Suspect]
     Active Substance: ADALIMUMAB
     Indication: Rheumatoid arthritis
     Dosage: AT 40.0 MILLIGRAM 1 EVERY 2 WEEKS
     Route: 058

REACTIONS (2)
  - Exposure to communicable disease [Unknown]
  - Clostridium difficile infection [Unknown]
